FAERS Safety Report 4355291-2 (Version None)
Quarter: 2004Q2

REPORT INFORMATION
  Report Type: 
  Country: None (occurrence: None)
  Receive Date: 20040504
  Receipt Date: 20031021
  Transmission Date: 20050107
  Serious: Yes (Hospitalization)
  Sender: FDA-Public Use
  Company Number: 200306496

PATIENT
  Age: 29 Year
  Sex: Male

DRUGS (1)
  1. PEPCID AC [Suspect]
     Dosage: PO
     Route: 048
     Dates: start: 20030427

REACTIONS (4)
  - BIOPSY LIVER ABNORMAL [None]
  - HEPATOCELLULAR DAMAGE [None]
  - LIVER DISORDER [None]
  - LYMPHOCYTIC INFILTRATION [None]
